FAERS Safety Report 6028548-7 (Version None)
Quarter: 2008Q4

REPORT INFORMATION
  Report Type: 
  Country: None (occurrence: None)
  Receive Date: 20081231
  Receipt Date: 20081231
  Transmission Date: 20090506
  Serious: Yes (Other)
  Sender: FDA-Public Use
  Company Number: None

PATIENT
  Age: 74 Year
  Sex: Male
  Weight: 90.9 kg

DRUGS (1)
  1. VARENICLINE [Suspect]
     Dosage: EVERY DAY PO
     Route: 048
     Dates: start: 20080917, end: 20081001

REACTIONS (3)
  - PRURITUS [None]
  - RASH GENERALISED [None]
  - SLEEP DISORDER DUE TO GENERAL MEDICAL CONDITION, INSOMNIA TYPE [None]
